FAERS Safety Report 4433815-4 (Version None)
Quarter: 2004Q3

REPORT INFORMATION
  Report Type: 
  Country: None (occurrence: None)
  Receive Date: 20040825
  Receipt Date: 20040825
  Transmission Date: 20050211
  Serious: Yes (Other)
  Sender: FDA-Public Use
  Company Number: None

PATIENT
  Age: 42 Year
  Sex: Male
  Weight: 75.8 kg

DRUGS (8)
  1. FLUNISOLIDE [Suspect]
  2. METOPROLOL TARTRATE [Concomitant]
  3. SPIRONOLACTONE [Concomitant]
  4. FERROUS SULFATE TAB [Concomitant]
  5. SODIUM CHLORIDE NASAL SPRAY [Concomitant]
  6. FLUNISOLIDE NASAL SPRAY [Concomitant]
  7. OMEPRAZOLE [Concomitant]
  8. GUAIFENESIN [Concomitant]

REACTIONS (2)
  - NASAL DISCOMFORT [None]
  - THROAT IRRITATION [None]
